FAERS Safety Report 9357272 (Version 1)
Quarter: 2013Q2

REPORT INFORMATION
  Report Type: Spontaneous
  Country: US (occurrence: US)
  Receive Date: 20130620
  Receipt Date: 20130620
  Transmission Date: 20140414
  Serious: Yes (Other)
  Sender: FDA-Public Use
  Company Number: US-UCBSA-088619

PATIENT
  Sex: Female

DRUGS (2)
  1. ISMN ER [Suspect]
     Dosage: DRUG STRENGTH: 60 MG
     Dates: start: 201205
  2. BACTRIM [Concomitant]
     Indication: KIDNEY INFECTION

REACTIONS (2)
  - Kidney infection [Not Recovered/Not Resolved]
  - Medication residue present [Unknown]
